FAERS Safety Report 23760578 (Version 1)
Quarter: 2024Q2

REPORT INFORMATION
  Report Type: Spontaneous
  Country: US (occurrence: US)
  Receive Date: 20240419
  Receipt Date: 20240419
  Transmission Date: 20240715
  Serious: No
  Sender: FDA-Public Use
  Company Number: US-Nobelpharma America, LLC-NPA-2024-00624

PATIENT
  Sex: Male

DRUGS (1)
  1. HYFTOR [Suspect]
     Active Substance: SIROLIMUS
     Indication: Benign neoplasm of skin
     Dosage: APPLY TO THE SKIN OF THE FACE AFFECTED WITH ANGIOFIBROMA TWICE DAILY
     Route: 003
     Dates: start: 20230425

REACTIONS (1)
  - Burning sensation [Unknown]
